FAERS Safety Report 8932407 (Version 1)
Quarter: 2012Q4

REPORT INFORMATION
  Report Type: 
  Country: US (occurrence: US)
  Receive Date: 20121128
  Receipt Date: 20121128
  Transmission Date: 20130627
  Serious: No
  Sender: FDA-Public Use
  Company Number: US-009507513-1211USA009945

PATIENT
  Sex: Male

DRUGS (10)
  1. VICTRELIS [Suspect]
     Indication: CHRONIC HEPATITIS C
     Dosage: 800 mg, tid
     Route: 048
     Dates: start: 20121025
  2. PEGASYS [Suspect]
  3. RIBASPHERE [Suspect]
  4. CIALIS [Concomitant]
  5. JANUMET [Concomitant]
  6. AMARYL [Concomitant]
  7. TEKTURNA [Concomitant]
  8. ZOLOFT [Concomitant]
  9. VALTREX [Concomitant]
  10. NEXIUM [Concomitant]

REACTIONS (2)
  - Fatigue [Not Recovered/Not Resolved]
  - Haematocrit decreased [Not Recovered/Not Resolved]
